FAERS Safety Report 9169573 (Version 6)
Quarter: 2014Q3

REPORT INFORMATION
  Report Type: Spontaneous
  Country: US (occurrence: US)
  Receive Date: 20130318
  Receipt Date: 20140721
  Transmission Date: 20150326
  Serious: Yes (Hospitalization, Other)
  Sender: FDA-Public Use
  Company Number: US-009507513-1303USA007577

PATIENT
  Sex: Female
  Weight: 65.76 kg

DRUGS (1)
  1. NUVARING [Suspect]
     Active Substance: ETHINYL ESTRADIOL\ETONOGESTREL
     Indication: CONTRACEPTION
     Dosage: UNK
     Route: 067
     Dates: start: 20080823, end: 201003

REACTIONS (8)
  - Night sweats [Unknown]
  - Blood disorder [Unknown]
  - Coagulopathy [Unknown]
  - Oropharyngeal pain [Unknown]
  - Cough [Unknown]
  - Weight increased [Unknown]
  - Pulmonary embolism [Unknown]
  - Fatigue [Unknown]

NARRATIVE: CASE EVENT DATE: 201003
